FAERS Safety Report 8112164-7 (Version None)
Quarter: 2012Q1

REPORT INFORMATION
  Report Type: 
  Country: None (occurrence: None)
  Receive Date: 20120203
  Receipt Date: 20120123
  Transmission Date: 20120608
  Serious: Yes (Hospitalization)
  Sender: FDA-Public Use
  Company Number: CA-CELGENEUS-028-C5013-12012312

PATIENT
  Sex: Male
  Weight: 87.7 kg

DRUGS (5)
  1. LENALIDOMIDE [Suspect]
     Route: 048
     Dates: start: 20120109, end: 20120121
  2. LENALIDOMIDE [Suspect]
     Route: 048
     Dates: start: 20111128
  3. CALCITONIN SALMON [Concomitant]
     Dosage: 360 UNITS
     Route: 058
     Dates: start: 20120122, end: 20120122
  4. PAMIDRONATE DISODIUM [Concomitant]
     Dosage: 90 MILLIGRAM
     Route: 041
     Dates: start: 20120121, end: 20120121
  5. ALLOPURINOL [Concomitant]
     Indication: PROPHYLAXIS
     Dosage: 300 MILLIGRAM
     Route: 048
     Dates: start: 20120121

REACTIONS (2)
  - BLOOD CREATININE INCREASED [None]
  - HYPERCALCAEMIA [None]
